FAERS Safety Report 9734213 (Version 2)
Quarter: 2013Q4

REPORT INFORMATION
  Report Type: Spontaneous
  Country: US (occurrence: US)
  Receive Date: 20131205
  Receipt Date: 20131219
  Transmission Date: 20140711
  Serious: Yes (Death, Other)
  Sender: FDA-Public Use
  Company Number: US-GILEAD-2013-0089061

PATIENT
  Age: 76 Year
  Sex: Female

DRUGS (12)
  1. LETAIRIS [Suspect]
     Indication: PULMONARY ARTERIAL HYPERTENSION
     Dosage: 10 MG, QD
     Route: 048
     Dates: start: 201007, end: 201311
  2. LETAIRIS [Suspect]
     Dosage: 5 MG, QD
     Route: 048
     Dates: start: 201006
  3. COLCHICINE [Concomitant]
  4. ALLOPURINOL [Concomitant]
  5. GLIPIZIDE [Concomitant]
  6. SPIRONOLACTONE [Concomitant]
  7. ADCIRCA [Concomitant]
  8. DIGOXIN [Concomitant]
  9. PEPCID                             /00706001/ [Concomitant]
  10. HYDRALAZINE [Concomitant]
  11. METOLAZONE [Concomitant]
  12. MORPHINE [Concomitant]

REACTIONS (1)
  - Death [Fatal]
